FAERS Safety Report 8344083-5 (Version None)
Quarter: 2012Q2

REPORT INFORMATION
  Report Type: 
  Country: None (occurrence: None)
  Receive Date: 20120508
  Receipt Date: 20110216
  Transmission Date: 20120825
  Serious: No
  Sender: FDA-Public Use
  Company Number: US-TEVA-2011000795

PATIENT
  Sex: Female
  Weight: 76.1 kg

DRUGS (6)
  1. ZOFRAN [Concomitant]
     Dates: start: 20100906, end: 20110216
  2. BENADRYL [Concomitant]
     Dates: start: 20100906, end: 20110216
  3. TREANDA [Suspect]
     Indication: NON-HODGKIN'S LYMPHOMA
     Route: 042
     Dates: start: 20100906, end: 20110216
  4. TYLENOL (CAPLET) [Concomitant]
     Dates: start: 20100906, end: 20110216
  5. RITUXIMAB [Concomitant]
     Indication: NON-HODGKIN'S LYMPHOMA
     Route: 042
     Dates: start: 20100906, end: 20110216
  6. PREDNISONE [Concomitant]
     Dates: start: 20100906, end: 20110216

REACTIONS (1)
  - INFUSION SITE IRRITATION [None]
